FAERS Safety Report 8605575-4 (Version None)
Quarter: 2012Q3

REPORT INFORMATION
  Report Type: 
  Country: None (occurrence: None)
  Receive Date: 20120820
  Receipt Date: 20120814
  Transmission Date: 20120928
  Serious: No
  Sender: FDA-Public Use
  Company Number: US-B.I. PHARMACEUTICALS,INC./RIDGEFIELD-2012-BP-19310BP

PATIENT
  Sex: Female

DRUGS (3)
  1. SPIRIVA [Suspect]
     Indication: DYSPNOEA
     Dosage: 18 MCG
     Route: 055
     Dates: start: 20120401
  2. DULERA [Concomitant]
     Indication: DYSPNOEA
     Route: 055
     Dates: start: 20120401
  3. ALBUTEROL [Concomitant]
     Indication: DYSPNOEA
     Route: 055
     Dates: start: 20120401

REACTIONS (1)
  - DYSPNOEA [None]
